FAERS Safety Report 9136588 (Version 1)
Quarter: 2013Q1

REPORT INFORMATION
  Report Type: Spontaneous
  Country: US (occurrence: US)
  Receive Date: 20130304
  Receipt Date: 20130304
  Transmission Date: 20140127
  Serious: No
  Sender: FDA-Public Use
  Company Number: US-ABBOTT-12P-163-1001990-00

PATIENT
  Sex: Male

DRUGS (1)
  1. ANDROGEL [Suspect]
     Dosage: APPLIED TO SHOULDERS
     Dates: start: 20120925

REACTIONS (12)
  - Pruritus [Unknown]
  - Genital burning sensation [Unknown]
  - Penile pain [Unknown]
  - Scrotal pain [Unknown]
  - Burning sensation [Unknown]
  - Genital erythema [Unknown]
  - Excoriation [Unknown]
  - Skin exfoliation [Unknown]
  - Bronchitis [Unknown]
  - Skin exfoliation [Unknown]
  - Dysuria [Unknown]
  - Skin discolouration [Unknown]
